FAERS Safety Report 13995952 (Version 2)
Quarter: 2017Q4

REPORT INFORMATION
  Report Type: Spontaneous
  Country: GB (occurrence: GB)
  Receive Date: 20170921
  Receipt Date: 20171013
  Transmission Date: 20180321
  Serious: Yes (Hospitalization)
  Sender: FDA-Public Use
  Company Number: GB-MYLANLABS-2017M1055258

PATIENT
  Age: 61 Year
  Sex: Male

DRUGS (1)
  1. CLOZARIL [Suspect]
     Active Substance: CLOZAPINE
     Indication: SCHIZOPHRENIA
     Dosage: UNK
     Route: 048
     Dates: start: 20170518

REACTIONS (17)
  - Sepsis [Recovering/Resolving]
  - International normalised ratio increased [Unknown]
  - Prothrombin time prolonged [Unknown]
  - Leukocytosis [Not Recovered/Not Resolved]
  - Platelet count increased [Not Recovered/Not Resolved]
  - Blood albumin decreased [Unknown]
  - Haemoglobin decreased [Unknown]
  - Neutrophilia [Not Recovered/Not Resolved]
  - Blood alkaline phosphatase increased [Unknown]
  - Blood fibrinogen increased [Unknown]
  - C-reactive protein increased [Unknown]
  - Differential white blood cell count abnormal [Unknown]
  - Monocyte count increased [Unknown]
  - Blood calcium decreased [Unknown]
  - Blood phosphorus increased [Unknown]
  - Glomerular filtration rate decreased [Unknown]
  - Therapy cessation [Unknown]

NARRATIVE: CASE EVENT DATE: 2017
